FAERS Safety Report 6392235-6 (Version None)
Quarter: 2009Q4

REPORT INFORMATION
  Report Type: 
  Country: None (occurrence: None)
  Receive Date: 20091005
  Receipt Date: 20090929
  Transmission Date: 20100525
  Serious: Yes (Death)
  Sender: FDA-Public Use
  Company Number: 2009SP027834

PATIENT
  Sex: Male

DRUGS (1)
  1. VIRAFERONPEG [Suspect]
     Indication: HEPATITIS C
     Dosage: 50 MCG;QD

REACTIONS (1)
  - DEATH [None]
